FAERS Safety Report 12653978 (Version 1)
Quarter: 2016Q3

REPORT INFORMATION
  Report Type: Spontaneous
  Country: US (occurrence: US)
  Receive Date: 20160816
  Receipt Date: 20160816
  Transmission Date: 20161109
  Serious: No
  Sender: FDA-Public Use
  Company Number: US-HORIZON-PEN-0380-2016

PATIENT
  Sex: Female

DRUGS (2)
  1. VOLTAREN [Concomitant]
     Active Substance: DICLOFENAC SODIUM
  2. PENNSAID [Suspect]
     Active Substance: DICLOFENAC SODIUM
     Indication: PRODUCT USED FOR UNKNOWN INDICATION

REACTIONS (2)
  - Fatigue [Unknown]
  - Intraocular pressure test [Recovering/Resolving]
